FAERS Safety Report 24596033 (Version 1)
Quarter: 2024Q4

REPORT INFORMATION
  Report Type: Report from Study
  Country: FR (occurrence: FR)
  Receive Date: 20241109
  Receipt Date: 20241109
  Transmission Date: 20250115
  Serious: Yes (Hospitalization, Other)
  Sender: JOHNSON AND JOHNSON
  Company Number: FR-JNJFOC-20240252309

PATIENT
  Age: 68 Year
  Sex: Female
  Weight: 50 kg

DRUGS (11)
  1. TECLISTAMAB [Suspect]
     Active Substance: TECLISTAMAB
     Indication: Plasma cell myeloma
     Dosage: DOSE 1
     Route: 058
     Dates: start: 20240115
  2. TECLISTAMAB [Suspect]
     Active Substance: TECLISTAMAB
     Dosage: DOSE 2
     Route: 058
     Dates: start: 20240119
  3. TECLISTAMAB [Suspect]
     Active Substance: TECLISTAMAB
     Dosage: DOSE 3
     Route: 058
     Dates: start: 20240122
  4. TECLISTAMAB [Suspect]
     Active Substance: TECLISTAMAB
     Dosage: WEEK 2
     Route: 058
     Dates: start: 20240129
  5. TECLISTAMAB [Suspect]
     Active Substance: TECLISTAMAB
     Dosage: WEEK 3
     Route: 058
     Dates: start: 20240206
  6. TOCILIZUMAB [Concomitant]
     Active Substance: TOCILIZUMAB
  7. POLARAMINE [Concomitant]
     Active Substance: DEXCHLORPHENIRAMINE MALEATE
     Indication: Prophylaxis
     Dates: start: 20240115
  8. DEXAMETHASONE [Concomitant]
     Active Substance: DEXAMETHASONE
     Indication: Prophylaxis
     Dates: start: 20240115
  9. ACETAMINOPHEN [Concomitant]
     Active Substance: ACETAMINOPHEN
     Indication: Prophylaxis
     Dates: start: 20240115
  10. VALACYCLOVIR HYDROCHLORIDE [Concomitant]
     Active Substance: VALACYCLOVIR HYDROCHLORIDE
     Indication: Prophylaxis
     Dates: start: 20240115
  11. HUMAN IMMUNOGLOBULIN G [Concomitant]
     Active Substance: HUMAN IMMUNOGLOBULIN G
     Indication: Prophylaxis
     Dates: start: 20240201, end: 20240201

REACTIONS (2)
  - Clostridium difficile colitis [Recovered/Resolved]
  - Cytokine release syndrome [Recovered/Resolved]

NARRATIVE: CASE EVENT DATE: 20240117
